FAERS Safety Report 25259749 (Version 3)
Quarter: 2025Q3

REPORT INFORMATION
  Report Type: Spontaneous
  Country: US (occurrence: US)
  Receive Date: 20250501
  Receipt Date: 20250826
  Transmission Date: 20251021
  Serious: No
  Sender: PFIZER
  Company Number: US-PFIZER INC-202500090782

PATIENT
  Age: 62 Year
  Sex: Female
  Weight: 107 kg

DRUGS (1)
  1. PACLITAXEL [Suspect]
     Active Substance: PACLITAXEL
     Route: 042
     Dates: start: 20250313, end: 20250403

REACTIONS (3)
  - Skin reaction [Unknown]
  - Rash [Unknown]
  - Infusion related reaction [Unknown]
